FAERS Safety Report 24753202 (Version 1)
Quarter: 2024Q4

REPORT INFORMATION
  Report Type: Spontaneous
  Country: US (occurrence: US)
  Receive Date: 20241219
  Receipt Date: 20241219
  Transmission Date: 20250115
  Serious: No
  Sender: PACIRA
  Company Number: US-ORG100016242-2024000030

PATIENT
  Age: 77 Year
  Sex: Female

DRUGS (2)
  1. EXPAREL [Suspect]
     Active Substance: BUPIVACAINE
     Indication: Endodontic procedure
     Dosage: DOSAGE NOT PROVIDED
     Route: 065
     Dates: start: 20240110, end: 20240110
  2. EXPAREL [Suspect]
     Active Substance: BUPIVACAINE
     Indication: Endodontic procedure
     Dosage: DOSAGE NOT PROVIDED
     Route: 065
     Dates: start: 20240117, end: 20240117

REACTIONS (4)
  - Influenza like illness [Unknown]
  - Procedural vomiting [Unknown]
  - Asthenia [Unknown]
  - Diarrhoea [Unknown]

NARRATIVE: CASE EVENT DATE: 20240112
